FAERS Safety Report 11491937 (Version 2)
Quarter: 2015Q3

REPORT INFORMATION
  Report Type: Spontaneous
  Country: BG (occurrence: BG)
  Receive Date: 20150910
  Receipt Date: 20150918
  Transmission Date: 20151125
  Serious: Yes (Death, Hospitalization, Other)
  Sender: FDA-Public Use
  Company Number: BG-UCBSA-2015028443

PATIENT
  Age: 49 Year
  Sex: Female

DRUGS (2)
  1. ARAVA [Concomitant]
     Active Substance: LEFLUNOMIDE
     Indication: PRODUCT USED FOR UNKNOWN INDICATION
     Dosage: UNKNOWN DOSE
     Dates: start: 201412
  2. CIMZIA [Suspect]
     Active Substance: CERTOLIZUMAB PEGOL
     Indication: RHEUMATOID ARTHRITIS
     Dosage: 200 MG, EV 2 WEEKS(QOW)
     Route: 058
     Dates: start: 201506, end: 201508

REACTIONS (11)
  - Cranial nerve disorder [Unknown]
  - Hallucination [Unknown]
  - Vomiting [Unknown]
  - Hypercorticoidism [Unknown]
  - Multi-organ failure [Fatal]
  - Colitis ulcerative [Not Recovered/Not Resolved]
  - Visual impairment [Unknown]
  - Liver disorder [Unknown]
  - Pancytopenia [Unknown]
  - Respiratory disorder [Unknown]
  - Coma [Unknown]

NARRATIVE: CASE EVENT DATE: 2015
